FAERS Safety Report 10209230 (Version 2)
Quarter: 2014Q2

REPORT INFORMATION
  Report Type: Spontaneous
  Country: FR (occurrence: FR)
  Receive Date: 20140530
  Receipt Date: 20140626
  Transmission Date: 20141212
  Serious: Yes (Hospitalization)
  Sender: FDA-Public Use
  Company Number: FR-PFIZER INC-2014143413

PATIENT
  Age: 45 Year
  Sex: Female

DRUGS (5)
  1. SALAZOPYRINE [Suspect]
     Dosage: UNK
     Route: 048
     Dates: start: 20140310, end: 20140420
  2. SALAZOPYRINE [Suspect]
     Dosage: UNK
     Route: 048
     Dates: start: 201404, end: 20140505
  3. ESOMEPRAZOLE MAGNESIUM [Suspect]
     Dosage: UNK
     Route: 048
     Dates: start: 20140310, end: 20140505
  4. BI-PROFENID [Suspect]
     Dosage: UNK
     Route: 048
     Dates: start: 20140310, end: 20140505
  5. IXPRIM [Suspect]
     Dosage: UNK
     Route: 048
     Dates: start: 20140310, end: 20140505

REACTIONS (3)
  - Hypersensitivity vasculitis [Recovered/Resolved]
  - Oedema [Recovered/Resolved]
  - Gastrooesophageal reflux disease [Unknown]
